FAERS Safety Report 8881588 (Version 1)
Quarter: 2012Q4

REPORT INFORMATION
  Report Type: Report from Study
  Country: US (occurrence: US)
  Receive Date: 20121102
  Receipt Date: 20121102
  Transmission Date: 20130627
  Serious: Yes (Other)
  Sender: FDA-Public Use
  Company Number: US-ASTELLAS-2011US000311

PATIENT
  Age: 0 Year
  Sex: Female
  Weight: 1 kg

DRUGS (3)
  1. PROGRAF [Suspect]
     Indication: FOETAL EXPOSURE DURING PREGNANCY
     Dosage: 1.5 mg, bid
     Route: 048
  2. PROGRAF [Suspect]
     Dosage: 2.5 mg, bid
     Route: 048
  3. PROGRAF [Suspect]
     Dosage: 3 mg, bid
     Route: 048

REACTIONS (2)
  - Jaundice neonatal [Unknown]
  - Premature baby [Unknown]
